FAERS Safety Report 14137111 (Version 1)
Quarter: 2017Q4

REPORT INFORMATION
  Report Type: Spontaneous
  Country: DE (occurrence: DE)
  Receive Date: 20171027
  Receipt Date: 20171027
  Transmission Date: 20180321
  Serious: Yes (Hospitalization)
  Sender: FDA-Public Use
  Company Number: DE-TEVA-820185GER

PATIENT
  Age: 19 Year
  Sex: Female

DRUGS (3)
  1. ASUMATE 20 [Suspect]
     Active Substance: ETHINYL ESTRADIOL\LEVONORGESTREL
     Indication: ORAL CONTRACEPTION
     Dosage: 1 DOSAGE FORMS DAILY; 1 DOSAGE FORM CONTAINS 0.1 MG LEVONORGESTREL AND 0.02 MG ETHINYLESTRADIOL
     Route: 048
     Dates: start: 201510, end: 201603
  2. DIENOVEL [Concomitant]
     Active Substance: DIENOGEST\ETHINYL ESTRADIOL
     Indication: ORAL CONTRACEPTION
     Dates: start: 201604, end: 201704
  3. NUVARING [Concomitant]
     Active Substance: ETHINYL ESTRADIOL\ETONOGESTREL
     Indication: CONTRACEPTION
     Dates: start: 201704

REACTIONS (10)
  - Abdominal rigidity [Recovering/Resolving]
  - Abdominal pain [Recovering/Resolving]
  - Lymphadenitis [Unknown]
  - Weight increased [Unknown]
  - Fallopian tube cyst [Unknown]
  - Appendicitis [Recovered/Resolved]
  - Constipation [Recovering/Resolving]
  - Discomfort [Recovering/Resolving]
  - Diarrhoea [Recovering/Resolving]
  - Appendiceal abscess [Recovered/Resolved]

NARRATIVE: CASE EVENT DATE: 201510
